FAERS Safety Report 17268720 (Version 1)
Quarter: 2020Q1

REPORT INFORMATION
  Report Type: Spontaneous
  Country: US (occurrence: US)
  Receive Date: 20200114
  Receipt Date: 20200114
  Transmission Date: 20200409
  Serious: Yes (Death)
  Sender: FDA-Public Use
  Company Number: None

PATIENT
  Age: 38 Year
  Sex: Female

DRUGS (2)
  1. VANCOMYCIN [Suspect]
     Active Substance: VANCOMYCIN
  2. ETHINYL ESTRADIOL / LEVONORGESTREL [Suspect]
     Active Substance: ETHINYL ESTRADIOL\LEVONORGESTREL

REACTIONS (9)
  - Cerebral haemorrhage [None]
  - Acute kidney injury [None]
  - Haemodialysis [None]
  - Pulmonary embolism [None]
  - Hyperkalaemia [None]
  - Pneumonia [None]
  - Embolism venous [None]
  - Unresponsive to stimuli [None]
  - Hypoxia [None]

NARRATIVE: CASE EVENT DATE: 20190527
